FAERS Safety Report 25608224 (Version 2)
Quarter: 2025Q3

REPORT INFORMATION
  Report Type: Spontaneous
  Country: US (occurrence: US)
  Receive Date: 20250725
  Receipt Date: 20250730
  Transmission Date: 20251020
  Serious: Yes (Disabling, Other)
  Sender: TEVA
  Company Number: US-TEVA-VS-3354246

PATIENT
  Age: 48 Year
  Sex: Male

DRUGS (1)
  1. COPAXONE [Suspect]
     Active Substance: GLATIRAMER ACETATE
     Indication: Product used for unknown indication
     Route: 065
     Dates: start: 2011

REACTIONS (8)
  - Myelitis transverse [Unknown]
  - Disability [Unknown]
  - Sensory loss [Unknown]
  - Paralysis [Unknown]
  - Motor dysfunction [Unknown]
  - Skin disorder [Unknown]
  - Adverse event [Unknown]
  - Migraine [Unknown]

NARRATIVE: CASE EVENT DATE: 20220101
